FAERS Safety Report 4635763-3 (Version None)
Quarter: 2005Q2

REPORT INFORMATION
  Report Type: 
  Country: None (occurrence: None)
  Receive Date: 20050413
  Receipt Date: 20050404
  Transmission Date: 20051028
  Serious: Yes (Death, Hospitalization)
  Sender: FDA-Public Use
  Company Number: 2005AP01609

PATIENT
  Age: 88 Year
  Sex: Male

DRUGS (1)
  1. CASODEX [Suspect]
     Indication: PROSTATE CANCER
     Dosage: 80 MG DAILY PO
     Route: 048
     Dates: start: 20050131, end: 20050212

REACTIONS (14)
  - ATRIAL FIBRILLATION [None]
  - BLOOD UREA INCREASED [None]
  - CARDIOMEGALY [None]
  - DEPRESSED LEVEL OF CONSCIOUSNESS [None]
  - EMPHYSEMA [None]
  - HYPERCAPNIA [None]
  - INGUINAL HERNIA [None]
  - INTENTIONAL SELF-INJURY [None]
  - PLEURAL EFFUSION [None]
  - PNEUMONIA [None]
  - RENAL IMPAIRMENT [None]
  - RESPIRATORY FAILURE [None]
  - SELF INJURIOUS BEHAVIOUR [None]
  - TACHYCARDIA [None]
